FAERS Safety Report 8247784-2 (Version None)
Quarter: 2012Q1

REPORT INFORMATION
  Report Type: 
  Country: None (occurrence: None)
  Receive Date: 20120330
  Receipt Date: 20120319
  Transmission Date: 20120608
  Serious: Yes (Other)
  Sender: FDA-Public Use
  Company Number: JP-ELI_LILLY_AND_COMPANY-JP201201003647

PATIENT
  Sex: Female
  Weight: 60 kg

DRUGS (8)
  1. ETHINYLESTRADIOL W/NORETHISTERONE ACETATE [Concomitant]
     Indication: HORMONE REPLACEMENT THERAPY
     Dosage: UNK
     Route: 048
     Dates: start: 20100501
  2. HUMATROPE [Suspect]
     Indication: GROWTH HORMONE DEFICIENCY
     Dosage: UNK
     Route: 058
     Dates: start: 20110905, end: 20111002
  3. HUMATROPE [Suspect]
     Dosage: UNK
     Route: 058
     Dates: start: 20111003
  4. LAXOBERON [Concomitant]
     Indication: CONSTIPATION
     Dosage: UNK
     Route: 048
  5. LEVOTHYROXINE SODIUM [Concomitant]
     Indication: HYPOTHYROIDISM
     Dosage: UNK
     Route: 048
     Dates: start: 20100801
  6. DESMOPRESSIN ACETATE [Concomitant]
     Indication: DIABETES INSIPIDUS
     Dosage: UNK
     Dates: start: 20090201
  7. MAGNESIUM SULFATE [Concomitant]
     Indication: CONSTIPATION
     Dosage: 330 MG, TID
     Route: 048
  8. CORTRIL [Concomitant]
     Indication: HYPOPITUITARISM
     Dosage: UNK
     Route: 048
     Dates: start: 20090201

REACTIONS (2)
  - BLOOD CREATININE INCREASED [None]
  - HYPERURICAEMIA [None]
